FAERS Safety Report 24176442 (Version 2)
Quarter: 2024Q3

REPORT INFORMATION
  Report Type: Report from Study
  Country: US (occurrence: US)
  Receive Date: 20240806
  Receipt Date: 20240807
  Transmission Date: 20241017
  Serious: Yes (Hospitalization, Other)
  Sender: JOHNSON AND JOHNSON
  Company Number: US-JNJFOC-20240349539

PATIENT
  Age: 75 Year
  Sex: Male
  Weight: 68.6 kg

DRUGS (11)
  1. SELEXIPAG [Suspect]
     Active Substance: SELEXIPAG
     Indication: Pulmonary arterial hypertension
     Route: 048
  2. SELEXIPAG [Suspect]
     Active Substance: SELEXIPAG
     Route: 048
  3. SELEXIPAG [Suspect]
     Active Substance: SELEXIPAG
     Route: 048
  4. SELEXIPAG [Suspect]
     Active Substance: SELEXIPAG
     Dosage: USING 1 800MCG AND 1 200MCG TABLETS
     Route: 048
  5. SELEXIPAG [Suspect]
     Active Substance: SELEXIPAG
     Route: 048
  6. SELEXIPAG [Suspect]
     Active Substance: SELEXIPAG
     Route: 048
  7. SELEXIPAG [Suspect]
     Active Substance: SELEXIPAG
     Dosage: USING 800MCG AND 200MCG TABS
     Route: 048
  8. SELEXIPAG [Suspect]
     Active Substance: SELEXIPAG
     Route: 048
  9. SELEXIPAG [Suspect]
     Active Substance: SELEXIPAG
     Dosage: UPTRAVI 200MCG ORALLY; UPTRAVI 800MCG ORALLY
     Route: 048
  10. SILDENAFIL CITRATE [Concomitant]
     Active Substance: SILDENAFIL CITRATE
  11. AMBRISENTAN [Concomitant]
     Active Substance: AMBRISENTAN

REACTIONS (27)
  - Prostate cancer metastatic [Unknown]
  - Coronary arterial stent insertion [Unknown]
  - Deafness [Unknown]
  - Dysstasia [Unknown]
  - Cardiac rehabilitation therapy [Unknown]
  - Muscle spasms [Not Recovered/Not Resolved]
  - Headache [Not Recovered/Not Resolved]
  - Pain in extremity [Not Recovered/Not Resolved]
  - Diarrhoea [Not Recovered/Not Resolved]
  - Back pain [Not Recovered/Not Resolved]
  - Off label use [Unknown]
  - Decreased appetite [Not Recovered/Not Resolved]
  - Pain in jaw [Not Recovered/Not Resolved]
  - Malaise [Not Recovered/Not Resolved]
  - Nausea [Not Recovered/Not Resolved]
  - Vomiting [Unknown]
  - Weight decreased [Unknown]
  - Hiatus hernia [Not Recovered/Not Resolved]
  - Spinal column injury [Unknown]
  - Dyspepsia [Not Recovered/Not Resolved]
  - Asthenia [Not Recovered/Not Resolved]
  - Blood iron decreased [Unknown]
  - Vitamin B12 deficiency [Not Recovered/Not Resolved]
  - Myalgia [Unknown]
  - Peripheral swelling [Not Recovered/Not Resolved]
  - Genital swelling [Unknown]
  - Blood glucose decreased [Unknown]

NARRATIVE: CASE EVENT DATE: 20240313
